FAERS Safety Report 8539052-6 (Version None)
Quarter: 2012Q3

REPORT INFORMATION
  Report Type: 
  Country: None (occurrence: None)
  Receive Date: 20120726
  Receipt Date: 20120720
  Transmission Date: 20120928
  Serious: Yes (Death)
  Sender: FDA-Public Use
  Company Number: US-JNJFOC-20120711721

PATIENT
  Sex: Female

DRUGS (15)
  1. LIPITOR [Concomitant]
     Route: 065
  2. COMBIVENT [Concomitant]
     Route: 065
  3. ENTOCORT EC [Concomitant]
     Route: 065
  4. TOPROL-XL [Concomitant]
     Route: 065
  5. METFORMIN HYDROCHLORIDE [Concomitant]
     Route: 065
  6. XIFAXAN [Concomitant]
     Route: 065
  7. PREDNISONE [Concomitant]
     Route: 065
  8. ALL OTHER THERAPEUTIC PRODUCTS [Concomitant]
     Route: 065
  9. CYMBALTA [Concomitant]
     Route: 065
  10. HYDROCHLOROTHIAZIDE [Concomitant]
     Route: 065
  11. LANTUS [Concomitant]
     Route: 065
  12. ASACOL [Concomitant]
     Route: 065
  13. REMICADE [Suspect]
     Indication: COLITIS ULCERATIVE
     Route: 042
     Dates: start: 20100921
  14. AZATHIOPRINE [Concomitant]
     Route: 065
  15. REMICADE [Suspect]
     Indication: PSORIASIS
     Route: 042
     Dates: start: 20100921

REACTIONS (1)
  - MYOCARDIAL INFARCTION [None]
